FAERS Safety Report 9743869 (Version 1)
Quarter: 2013Q4

REPORT INFORMATION
  Report Type: Spontaneous
  Country: US (occurrence: US)
  Receive Date: 20131210
  Receipt Date: 20131210
  Transmission Date: 20140711
  Serious: No
  Sender: FDA-Public Use
  Company Number: US-BIOGENIDEC-2013BI097076

PATIENT
  Sex: Female

DRUGS (9)
  1. TECFIDERA [Suspect]
     Indication: MULTIPLE SCLEROSIS
     Route: 048
     Dates: start: 20130921
  2. TECFIDERA [Suspect]
     Indication: MULTIPLE SCLEROSIS
     Route: 048
  3. SIMVASTATIN [Concomitant]
  4. BACLOFEN [Concomitant]
  5. LEVOTHYROXINE [Concomitant]
  6. VITAMIN D3 [Concomitant]
  7. EQL VITAMIN C [Concomitant]
  8. MAGNEBIND [Concomitant]
  9. COMPLETE MULTIVITAMIN [Concomitant]

REACTIONS (4)
  - Headache [Unknown]
  - Pyrexia [Unknown]
  - Insomnia [Unknown]
  - Flushing [Unknown]
